FAERS Safety Report 19440965 (Version 1)
Quarter: 2021Q2

REPORT INFORMATION
  Report Type: Spontaneous
  Country: DE (occurrence: DE)
  Receive Date: 20210621
  Receipt Date: 20210621
  Transmission Date: 20210717
  Serious: Yes (Hospitalization, Other)
  Sender: FDA-Public Use
  Company Number: NVSC2021DE128461

PATIENT
  Age: 20 Year
  Sex: Male

DRUGS (8)
  1. CANDESARTAN. [Suspect]
     Active Substance: CANDESARTAN
     Indication: PRODUCT USED FOR UNKNOWN INDICATION
     Dosage: 48 MG, QD (48 MG, PER DAY)
     Route: 048
     Dates: start: 20210525, end: 20210525
  2. BROMAZEPAM [Suspect]
     Active Substance: BROMAZEPAM
     Indication: DRUG ABUSE
     Dosage: 24 MG, QD (24 MG, PER DAY)
     Route: 048
     Dates: start: 20210525, end: 20210525
  3. CARVEDILOL. [Suspect]
     Active Substance: CARVEDILOL
     Indication: DRUG ABUSE
     Dosage: 12.5 MG, QD (12.5 MG, PER DAY)
     Route: 048
     Dates: start: 20210525, end: 20210525
  4. BISOPROLOL FUMARATE. [Suspect]
     Active Substance: BISOPROLOL FUMARATE
     Indication: DRUG ABUSE
     Dosage: 3.75 MG, QD (4 X 3.75 MG, PER DAY)
     Route: 048
     Dates: start: 20210525, end: 20210525
  5. CLONAZEPAM. [Suspect]
     Active Substance: CLONAZEPAM
     Indication: DRUG ABUSE
     Dosage: 21 MG, QD (21 MG, PER DAY)
     Route: 048
     Dates: start: 20210525, end: 20210525
  6. ALPRAZOLAM. [Suspect]
     Active Substance: ALPRAZOLAM
     Indication: DRUG ABUSE
     Dosage: 17 MG, QD (17 MG, PER DAY)
     Route: 048
     Dates: start: 20210525, end: 20210525
  7. TILIDINE [Suspect]
     Active Substance: TILIDINE
     Indication: DRUG ABUSE
     Dosage: 600 MG, QD (200 MG + 400 MG, PER DAY)
     Route: 048
     Dates: start: 20210525, end: 20210525
  8. CODEIN [Suspect]
     Active Substance: CODEINE
     Indication: DRUG ABUSE
     Dosage: 120 MG, QD (120 MG, PER DAY)
     Route: 048
     Dates: start: 20210525, end: 20210525

REACTIONS (3)
  - Sinus bradycardia [Recovered/Resolved]
  - Drug abuse [Recovered/Resolved]
  - Acute kidney injury [Recovered/Resolved]

NARRATIVE: CASE EVENT DATE: 20210525
